FAERS Safety Report 8261916-1 (Version None)
Quarter: 2012Q2

REPORT INFORMATION
  Report Type: 
  Country: None (occurrence: None)
  Receive Date: 20120405
  Receipt Date: 20120402
  Transmission Date: 20120825
  Serious: Yes (Other)
  Sender: FDA-Public Use
  Company Number: US-PFIZER INC-2009194270

PATIENT
  Sex: Female
  Weight: 71.202 kg

DRUGS (12)
  1. FISH OIL [Concomitant]
     Dosage: UNK
  2. VICODIN [Concomitant]
     Indication: OSTEOARTHRITIS
     Dosage: 75 MG, 2X/DAY
  3. RANITIDINE [Concomitant]
     Dosage: UNK
  4. TESTOSTERONE [Concomitant]
     Dosage: UNK
  5. SERTRALINE [Concomitant]
     Dosage: UNK
  6. ASCORBIC ACID [Concomitant]
     Dosage: UNK
  7. SYNTHROID [Concomitant]
     Indication: HYPOTHYROIDISM
     Dosage: 125 UG, DAILY
  8. VITAMIN D [Concomitant]
     Dosage: UNK
  9. TRAMADOL [Concomitant]
     Dosage: UNK
  10. MULTI-VITAMINS [Concomitant]
     Dosage: UNK
  11. LYRICA [Suspect]
     Indication: FIBROMYALGIA
     Dosage: 50 MG, 3X/DAY
     Route: 048
     Dates: start: 20080101
  12. HYDROCODONE [Concomitant]
     Dosage: UNK

REACTIONS (2)
  - WEIGHT INCREASED [None]
  - HYPOTHYROIDISM [None]
